FAERS Safety Report 6193878-5 (Version None)
Quarter: 2009Q2

REPORT INFORMATION
  Report Type: 
  Country: None (occurrence: None)
  Receive Date: 20090518
  Receipt Date: 20090508
  Transmission Date: 20091009
  Serious: Yes (Other)
  Sender: FDA-Public Use
  Company Number: US-PFIZER INC-2008025368

PATIENT
  Sex: Female

DRUGS (2)
  1. CELEBREX [Suspect]
  2. NORVASC [Suspect]

REACTIONS (4)
  - BLOOD PRESSURE ABNORMAL [None]
  - OSTEOPOROSIS [None]
  - RHEUMATOID ARTHRITIS [None]
  - SJOGREN'S SYNDROME [None]
